FAERS Safety Report 5388601-8 (Version None)
Quarter: 2007Q3

REPORT INFORMATION
  Report Type: 
  Country: None (occurrence: None)
  Receive Date: 20070716
  Receipt Date: 20070706
  Transmission Date: 20080115
  Serious: Yes (Other)
  Sender: FDA-Public Use
  Company Number: CA-PFIZER INC-2007055930

PATIENT
  Sex: Female

DRUGS (1)
  1. DEPO-PROVERA SUSPENSION/INJ [Suspect]
     Indication: ENDOMETRIOSIS
     Dosage: FREQ:LAST INJECTION
     Route: 030
     Dates: start: 20060101, end: 20060101

REACTIONS (2)
  - ARTHRITIS [None]
  - OSTEOPOROSIS [None]
